FAERS Safety Report 9280518 (Version 1)
Quarter: 2013Q2

REPORT INFORMATION
  Report Type: Spontaneous
  Country: BR (occurrence: BR)
  Receive Date: 20130509
  Receipt Date: 20130509
  Transmission Date: 20140414
  Serious: Yes (Other)
  Sender: FDA-Public Use
  Company Number: BR-AMGEN-BRASP2012034929

PATIENT
  Age: 54 Year
  Sex: Female
  Weight: 47 kg

DRUGS (11)
  1. ENBREL [Suspect]
     Indication: RHEUMATOID ARTHRITIS
     Dosage: 50 MG, ONCE WEEKLY
     Dates: end: 2012
  2. ENBREL [Suspect]
     Dosage: 50 MG, ONCE WEEKLY
     Route: 058
     Dates: start: 201301
  3. MELOXICAM [Concomitant]
     Dosage: UNK
  4. PREDNISONE [Concomitant]
     Dosage: UNK
  5. FOLIC ACID [Concomitant]
     Dosage: UNK
  6. METHOTREXATE SODIUM [Concomitant]
     Dosage: UNK
  7. LEFLUNOMIDE [Concomitant]
     Dosage: UNK
  8. SELOZOK [Concomitant]
     Indication: HYPERTENSION
     Dosage: UNK
  9. ENALAPRIL [Concomitant]
     Indication: HYPERTENSION
     Dosage: UNK
  10. ARAVA [Concomitant]
     Dosage: 1 TABLET (UNSPECIFIED STRENGTH), 1X/DAY
  11. PARACETAMOL [Concomitant]
     Indication: PAIN
     Dosage: UNSPECIFIED DOSE, AS NEEDED, WHEN FEELING PAIN

REACTIONS (15)
  - Pyrexia [Unknown]
  - Fall [Unknown]
  - Bone disorder [Unknown]
  - Hepatic neoplasm [Unknown]
  - Spinal fracture [Unknown]
  - Eye pain [Unknown]
  - Headache [Unknown]
  - Wrong technique in drug usage process [Unknown]
  - Cough [Unknown]
  - Musculoskeletal chest pain [Unknown]
  - Local swelling [Unknown]
  - Swelling face [Unknown]
  - Hypersensitivity [Recovering/Resolving]
  - Back pain [Unknown]
  - Injection site pain [Unknown]
